FAERS Safety Report 9580855 (Version 1)
Quarter: 2013Q4

REPORT INFORMATION
  Report Type: Report from Study
  Country: CA (occurrence: CA)
  Receive Date: 20131002
  Receipt Date: 20131002
  Transmission Date: 20140711
  Serious: Yes (Hospitalization)
  Sender: FDA-Public Use
  Company Number: CA-JNJFOC-20130914923

PATIENT
  Sex: Male
  Weight: 118 kg

DRUGS (7)
  1. REMICADE [Suspect]
     Indication: RHEUMATOID ARTHRITIS
     Route: 042
     Dates: start: 200902
  2. GABAPENTIN [Concomitant]
     Route: 065
  3. NITRO [Concomitant]
     Route: 065
  4. NITRO [Concomitant]
     Route: 065
  5. PLAVIX [Concomitant]
     Route: 065
  6. CRESTOR [Concomitant]
     Route: 065
  7. METOPROLOL [Concomitant]
     Route: 065

REACTIONS (1)
  - Cardiac disorder [Recovering/Resolving]
